FAERS Safety Report 11180020 (Version 1)
Quarter: 2015Q2

REPORT INFORMATION
  Report Type: Report from Study
  Country: CA (occurrence: CA)
  Receive Date: 20150611
  Receipt Date: 20150611
  Transmission Date: 20150821
  Serious: Yes (Hospitalization)
  Sender: FDA-Public Use
  Company Number: CA-AMGEN-CANSL2015056322

PATIENT
  Age: 62 Year
  Sex: Female

DRUGS (5)
  1. FUROSEMIDE. [Concomitant]
     Active Substance: FUROSEMIDE
     Dosage: UNK
  2. LOSEC [Concomitant]
     Active Substance: OMEPRAZOLE
     Dosage: UNK
  3. PROZAC [Concomitant]
     Active Substance: FLUOXETINE HYDROCHLORIDE
     Dosage: UNK
  4. ENBREL [Suspect]
     Active Substance: ETANERCEPT
     Indication: RHEUMATOID ARTHRITIS
     Dosage: 50 MG, UNK
     Route: 065
     Dates: start: 20120303
  5. OXAZEPAM. [Concomitant]
     Active Substance: OXAZEPAM
     Dosage: UNK

REACTIONS (5)
  - Liver disorder [Unknown]
  - Headache [Unknown]
  - Feeling abnormal [Unknown]
  - Hepatic cirrhosis [Unknown]
  - Renal impairment [Unknown]

NARRATIVE: CASE EVENT DATE: 20150605
